FAERS Safety Report 5167175-0 (Version None)
Quarter: 2006Q4

REPORT INFORMATION
  Report Type: 
  Country: None (occurrence: None)
  Receive Date: 20061130
  Receipt Date: 20061114
  Transmission Date: 20070319
  Serious: No
  Sender: FDA-Public Use
  Company Number: TCI2006A05329

PATIENT
  Sex: Female

DRUGS (2)
  1. ACTOS [Suspect]
     Indication: DIABETES MELLITUS NON-INSULIN-DEPENDENT
     Dosage: 15 MG (15 MG,1 D)
     Route: 048
     Dates: start: 20060901, end: 20061001
  2. AMARYL [Concomitant]

REACTIONS (2)
  - MACULAR OEDEMA [None]
  - VISUAL ACUITY REDUCED [None]
